FAERS Safety Report 7786483-8 (Version None)
Quarter: 2011Q3

REPORT INFORMATION
  Report Type: 
  Country: None (occurrence: None)
  Receive Date: 20110929
  Receipt Date: 20110922
  Transmission Date: 20111222
  Serious: Yes (Life-Threatening, Hospitalization, Disabling)
  Sender: FDA-Public Use
  Company Number: GB-PFIZER INC-2011115016

PATIENT
  Age: 73 Year
  Sex: Female
  Weight: 160 kg

DRUGS (7)
  1. SIMVASTATIN [Concomitant]
     Indication: CARDIOVASCULAR EVENT PROPHYLAXIS
     Dosage: 40 MG, UNK
     Route: 048
     Dates: start: 20040101
  2. SIMVASTATIN [Concomitant]
     Indication: BLOOD PRESSURE INCREASED
  3. ESTRING [Suspect]
     Indication: ATROPHIC VULVOVAGINITIS
     Dosage: UNK
     Route: 067
     Dates: start: 20041025
  4. CANDESARTAN [Concomitant]
     Indication: BLOOD PRESSURE INCREASED
     Dosage: 8 MG, UNK
     Route: 048
     Dates: start: 20070101
  5. ENOXAPARIN [Concomitant]
     Indication: THROMBOSIS PROPHYLAXIS
     Dosage: 114 MG, UNK
  6. LANSOPRAZOLE [Concomitant]
     Indication: DYSPEPSIA
     Dosage: 15 MG, UNK
     Route: 048
     Dates: start: 20070101
  7. HEPARIN [Concomitant]
     Dosage: UNK
     Dates: start: 20110131, end: 20110205

REACTIONS (2)
  - DEEP VEIN THROMBOSIS [None]
  - FOOT OPERATION [None]
